FAERS Safety Report 6140887-8 (Version None)
Quarter: 2009Q2

REPORT INFORMATION
  Report Type: 
  Country: None (occurrence: None)
  Receive Date: 20090402
  Receipt Date: 20080606
  Transmission Date: 20091009
  Serious: No
  Sender: FDA-Public Use
  Company Number: US-KINGPHARMUSA00001-K200800658

PATIENT
  Age: 58 Year
  Sex: Female
  Weight: 58.957 kg

DRUGS (4)
  1. SKELAXIN [Suspect]
     Indication: MUSCULOSKELETAL PAIN
     Dosage: 800 MG, TID
     Route: 048
     Dates: start: 20080528, end: 20080604
  2. SKELAXIN [Suspect]
     Indication: PAIN IN EXTREMITY
  3. SKELAXIN [Suspect]
     Indication: BACK PAIN
  4. NAPROXEN [Concomitant]
     Dosage: 50 MG, BID

REACTIONS (1)
  - DRUG INEFFECTIVE [None]
